FAERS Safety Report 12943362 (Version 2)
Quarter: 2017Q1

REPORT INFORMATION
  Report Type: Spontaneous
  Country: ES (occurrence: ES)
  Receive Date: 20161115
  Receipt Date: 20170317
  Transmission Date: 20170428
  Serious: Yes (Hospitalization, Other)
  Sender: FDA-Public Use
  Company Number: ES-GLAXOSMITHKLINE-ES2016GSK165319

PATIENT
  Sex: Female

DRUGS (4)
  1. MYCOPHENOLATE MOFETIL. [Concomitant]
     Active Substance: MYCOPHENOLATE MOFETIL
  2. CORTICOIDS [Concomitant]
     Active Substance: UNSPECIFIED INGREDIENT
  3. BENLYSTA [Suspect]
     Active Substance: BELIMUMAB
     Indication: SYSTEMIC LUPUS ERYTHEMATOSUS
     Dosage: UNK
     Dates: start: 201603, end: 201610
  4. HYDROXYCHLOROQUINE [Concomitant]
     Active Substance: HYDROXYCHLOROQUINE
     Dosage: UNK

REACTIONS (4)
  - Drug ineffective [Unknown]
  - Splenic thrombosis [Unknown]
  - Abdominal pain [Unknown]
  - Intestinal varices haemorrhage [Unknown]

NARRATIVE: CASE EVENT DATE: 20161013
